FAERS Safety Report 16287943 (Version 3)
Quarter: 2019Q2

REPORT INFORMATION
  Report Type: Spontaneous
  Country: DE (occurrence: DE)
  Receive Date: 20190508
  Receipt Date: 20190522
  Transmission Date: 20190711
  Serious: Yes (Other)
  Sender: FDA-Public Use
  Company Number: DE-BAUSCH-BL-2019-013007

PATIENT
  Age: 2 Year
  Sex: Male

DRUGS (2)
  1. ZYKLOLAT EDO [Suspect]
     Active Substance: CYCLOPENTOLATE
     Dosage: 2X), BILATERALLY IN AN INTERVAL OF APPROXIMATELY 10 MINUTES
     Route: 065
     Dates: start: 20190430
  2. ZYKLOLAT EDO [Suspect]
     Active Substance: CYCLOPENTOLATE
     Indication: PRODUCT USED FOR UNKNOWN INDICATION
     Dosage: VOLUME: 20 X 0.5
     Route: 065

REACTIONS (7)
  - Crying [Recovering/Resolving]
  - Somnolence [Recovering/Resolving]
  - Dysphonia [Recovering/Resolving]
  - Papilloedema [Not Recovered/Not Resolved]
  - Abnormal behaviour [Not Recovered/Not Resolved]
  - Nausea [Recovering/Resolving]
  - Disorientation [Recovering/Resolving]

NARRATIVE: CASE EVENT DATE: 20190430
